FAERS Safety Report 5586376-0 (Version None)
Quarter: 2008Q1

REPORT INFORMATION
  Report Type: 
  Country: None (occurrence: None)
  Receive Date: 20080110
  Receipt Date: 20080102
  Transmission Date: 20080703
  Serious: Yes (Hospitalization, Other)
  Sender: FDA-Public Use
  Company Number: PHBS2007FI20403

PATIENT
  Sex: Male

DRUGS (2)
  1. LEPONEX [Suspect]
     Indication: SCHIZOPHRENIA
     Dates: end: 20071203
  2. INTERFERON [Suspect]
     Indication: HEPATITIS C

REACTIONS (5)
  - ACUTE PSYCHOSIS [None]
  - DRUG INTERACTION [None]
  - HEPATITIS C [None]
  - NEUTROPHIL COUNT DECREASED [None]
  - WHITE BLOOD CELL COUNT DECREASED [None]
